FAERS Safety Report 9711232 (Version 2)
Quarter: 2013Q4

REPORT INFORMATION
  Report Type: Spontaneous
  Country: US (occurrence: US)
  Receive Date: 20131126
  Receipt Date: 20131126
  Transmission Date: 20140711
  Serious: No
  Sender: FDA-Public Use
  Company Number: US-BRISTOL-MYERS SQUIBB COMPANY-18747287

PATIENT
  Age: 63 Year
  Sex: Female
  Weight: 92.51 kg

DRUGS (8)
  1. BYDUREON [Suspect]
     Indication: TYPE 2 DIABETES MELLITUS
     Dosage: NO OF INJECTIONS:4
     Route: 058
  2. KOMBIGLYZE XR [Concomitant]
     Dosage: STRENGHT: KOMBIGLYZE XR 2.5
  3. GLIPIZIDE [Concomitant]
     Dosage: TABS
  4. LISINOPRIL [Concomitant]
  5. SIMVASTATIN [Concomitant]
  6. SERTRALINE [Concomitant]
  7. VITAMIN D [Concomitant]
  8. B COMPLEX 100 [Concomitant]

REACTIONS (4)
  - Injection site reaction [Not Recovered/Not Resolved]
  - Weight decreased [Unknown]
  - Nausea [Unknown]
  - Blood pressure increased [Unknown]
